FAERS Safety Report 9359939 (Version 5)
Quarter: 2015Q3

REPORT INFORMATION
  Report Type: Report from Study
  Country: DE (occurrence: DE)
  Receive Date: 20130621
  Receipt Date: 20150729
  Transmission Date: 20151125
  Serious: Yes (Death, Hospitalization)
  Sender: FDA-Public Use
  Company Number: DE-ROCHE-1238076

PATIENT
  Age: 75 Year
  Sex: Female
  Weight: 70 kg

DRUGS (19)
  1. GLIBENCLAMID [Concomitant]
     Active Substance: GLYBURIDE
     Indication: DIABETES MELLITUS
     Route: 048
  2. 5-FU [Suspect]
     Active Substance: FLUOROURACIL
     Route: 041
     Dates: start: 20121211, end: 20130410
  3. AMLODIPIN [Concomitant]
     Active Substance: AMLODIPINE BESYLATE
     Indication: HYPERTENSION
     Route: 048
  4. DICLOPHENAC [Concomitant]
     Active Substance: DICLOFENAC SODIUM
     Indication: HEPATIC PAIN
     Route: 065
  5. MCP [Concomitant]
     Active Substance: METOCLOPRAMIDE HYDROCHLORIDE
     Indication: NAUSEA
     Route: 042
     Dates: start: 20130121, end: 20130121
  6. LOPERAMID [Concomitant]
     Active Substance: LOPERAMIDE
     Indication: DIARRHOEA
     Route: 065
     Dates: start: 20130117, end: 20130121
  7. HUMALOG [Concomitant]
     Active Substance: INSULIN LISPRO
     Indication: DIABETES MELLITUS
  8. BEVACIZUMAB [Suspect]
     Active Substance: BEVACIZUMAB
     Indication: COLORECTAL CANCER METASTATIC
     Dosage: 350 MG
     Route: 042
     Dates: start: 20121211, end: 20130409
  9. INSULIN [Concomitant]
     Active Substance: INSULIN NOS
     Indication: DIABETES MELLITUS
     Dosage: 8 IU DAILY?RAPID INSULIN
     Route: 058
  10. SAROTEN [Concomitant]
     Active Substance: AMITRIPTYLINE
     Indication: DEPRESSION
     Route: 048
  11. SAROTEN [Concomitant]
     Active Substance: AMITRIPTYLINE
     Route: 048
  12. CEFUROXIM [Concomitant]
     Active Substance: CEFUROXIME
     Indication: DIVERTICULUM INTESTINAL
     Route: 065
     Dates: start: 20130121, end: 20130129
  13. METRONIDAZOL [Concomitant]
     Active Substance: METRONIDAZOLE
     Indication: DIVERTICULUM INTESTINAL
     Route: 065
     Dates: start: 20130121, end: 20130129
  14. MUCOFALK [Concomitant]
     Indication: DIVERTICULUM INTESTINAL
     Route: 048
     Dates: start: 20130121, end: 20130129
  15. BISOPROLOL [Concomitant]
     Active Substance: BISOPROLOL
     Indication: HYPERTENSION
     Route: 048
  16. IRINOTECAN [Suspect]
     Active Substance: IRINOTECAN
     Indication: COLORECTAL CANCER METASTATIC
     Route: 042
     Dates: start: 20121211, end: 20130409
  17. FOLINIC ACID [Suspect]
     Active Substance: LEUCOVORIN
     Indication: COLORECTAL CANCER METASTATIC
     Route: 042
     Dates: start: 20121211, end: 20130409
  18. 5-FU [Suspect]
     Active Substance: FLUOROURACIL
     Indication: COLORECTAL CANCER METASTATIC
     Route: 040
     Dates: start: 20121211, end: 20130409
  19. ASPIRIN. [Concomitant]
     Active Substance: ASPIRIN
     Dosage: 100 MG ONCE DAILY
     Route: 048

REACTIONS (9)
  - Death [Fatal]
  - Depression [Recovered/Resolved]
  - Pneumonia [Recovered/Resolved with Sequelae]
  - Pyrexia [Recovered/Resolved]
  - Hyperventilation [Recovered/Resolved]
  - C-reactive protein increased [Recovered/Resolved]
  - Anaemia of malignant disease [Recovered/Resolved]
  - Tachycardia [Recovering/Resolving]
  - Oedema peripheral [Recovered/Resolved]

NARRATIVE: CASE EVENT DATE: 20130516
